FAERS Safety Report 7103583-6 (Version None)
Quarter: 2010Q4

REPORT INFORMATION
  Report Type: 
  Country: None (occurrence: None)
  Receive Date: 20101115
  Receipt Date: 20101104
  Transmission Date: 20110411
  Serious: Yes (Hospitalization)
  Sender: FDA-Public Use
  Company Number: GXKR2010US12492

PATIENT
  Age: 9 Year
  Sex: Male

DRUGS (2)
  1. DIPHENHYDRAMINE HCL [Suspect]
     Indication: NASAL CONGESTION
     Route: 048
  2. DIPHENHYDRAMINE HCL [Suspect]
     Indication: INSOMNIA

REACTIONS (5)
  - ALTERED STATE OF CONSCIOUSNESS [None]
  - CONFUSIONAL STATE [None]
  - HALLUCINATION, VISUAL [None]
  - MUCOUS MEMBRANE DISORDER [None]
  - MYDRIASIS [None]
